FAERS Safety Report 11733852 (Version 1)
Quarter: 2015Q4

REPORT INFORMATION
  Report Type: Spontaneous
  Country: US (occurrence: US)
  Receive Date: 20151110
  Receipt Date: 20151110
  Transmission Date: 20160304
  Serious: No
  Sender: FDA-Public Use
  Company Number: US-ELI_LILLY_AND_COMPANY-US201111007569

PATIENT
  Age: 84 Year
  Sex: Female

DRUGS (3)
  1. FORTEO [Suspect]
     Active Substance: TERIPARATIDE
     Dosage: 20 UG, QD
     Route: 058
  2. FORTEO [Suspect]
     Active Substance: TERIPARATIDE
     Dosage: 20 UG, QD
     Route: 058
  3. FORTEO [Suspect]
     Active Substance: TERIPARATIDE
     Indication: OSTEOPOROSIS
     Dosage: 20 UG, QD
     Route: 058
     Dates: start: 201109

REACTIONS (9)
  - Fall [Unknown]
  - Varicose vein [Unknown]
  - Abdominal distension [Unknown]
  - Joint stabilisation [Unknown]
  - Bruxism [Unknown]
  - Back pain [Unknown]
  - Dyskinesia [Unknown]
  - Injection site bruising [Unknown]
  - Pain in jaw [Unknown]

NARRATIVE: CASE EVENT DATE: 20111111
